FAERS Safety Report 22620498 (Version 1)
Quarter: 2023Q2

REPORT INFORMATION
  Report Type: Report from Study
  Country: AU (occurrence: AU)
  Receive Date: 20230620
  Receipt Date: 20230620
  Transmission Date: 20230721
  Serious: Yes (Hospitalization)
  Sender: FDA-Public Use
  Company Number: AU-MYLANLABS-2023M1064708

PATIENT
  Age: 85 Year

DRUGS (1)
  1. ALLOPURINOL [Suspect]
     Active Substance: ALLOPURINOL
     Indication: Product used for unknown indication
     Dosage: UNK
     Route: 065

REACTIONS (6)
  - Herpes simplex [Recovered/Resolved]
  - Pseudophakic bullous keratopathy [Unknown]
  - Corneal dystrophy [Unknown]
  - Punctate keratitis [Unknown]
  - Toxic epidermal necrolysis [Recovered/Resolved]
  - Acute kidney injury [Recovered/Resolved]
